FAERS Safety Report 18939940 (Version 1)
Quarter: 2021Q1

REPORT INFORMATION
  Report Type: Spontaneous
  Country: US (occurrence: US)
  Receive Date: 20210225
  Receipt Date: 20210225
  Transmission Date: 20210420
  Serious: Yes (Other)
  Sender: FDA-Public Use
  Company Number: US-TOPROL-2020000243

PATIENT
  Sex: Female

DRUGS (12)
  1. TYLENOL [Concomitant]
     Active Substance: ACETAMINOPHEN
  2. METOPROLOL SUCCINATE. [Suspect]
     Active Substance: METOPROLOL SUCCINATE
     Indication: PRODUCT USED FOR UNKNOWN INDICATION
  3. POTASSIUM CHLORIDE. [Concomitant]
     Active Substance: POTASSIUM CHLORIDE
     Dosage: UNK
  4. EZETIMIBE. [Concomitant]
     Active Substance: EZETIMIBE
     Dosage: UNK
  5. ASPIRIN EC [Concomitant]
     Active Substance: ASPIRIN
  6. VALSARTAN + HIDROCLOROTIAZIDA [Concomitant]
     Active Substance: HYDROCHLOROTHIAZIDE\VALSARTAN
     Dosage: 160?12
  7. HYDROCODONE/ACETAMINOPHEN [Concomitant]
     Active Substance: ACETAMINOPHEN\HYDROCODONE
     Dosage: 5 MG?32
  8. ROSUVASTATIN CALCIUM. [Concomitant]
     Active Substance: ROSUVASTATIN CALCIUM
  9. ONDANSETRON ODT DRLA [Concomitant]
     Active Substance: ONDANSETRON
  10. CLOBETASOL PROPIONATE. [Concomitant]
     Active Substance: CLOBETASOL PROPIONATE
  11. LYNPARZA [Concomitant]
     Active Substance: OLAPARIB
     Indication: OVARIAN CANCER
  12. CEPHALEXIN                         /00145501/ [Concomitant]
     Active Substance: CEPHALEXIN

REACTIONS (2)
  - Palpitations [Unknown]
  - Therapeutic product effect incomplete [Unknown]
